FAERS Safety Report 9028624 (Version 2)
Quarter: 2013Q2

REPORT INFORMATION
  Report Type: Spontaneous
  Country: US (occurrence: US)
  Receive Date: 20130124
  Receipt Date: 20130628
  Transmission Date: 20140414
  Serious: Yes (Disabling, Other)
  Sender: FDA-Public Use
  Company Number: US-UCBSA-076005

PATIENT
  Age: 37 Year
  Sex: Male

DRUGS (3)
  1. KEPPRA XR [Suspect]
     Indication: CONVULSION
     Dosage: STRENGTH: 500 MG
  2. KEPPRA XR [Suspect]
     Indication: CONVULSION
  3. KEPPRA XR [Suspect]
     Indication: CONVULSION
     Route: 048

REACTIONS (3)
  - Cardiac operation [Unknown]
  - Asthma [Unknown]
  - Inappropriate schedule of drug administration [Unknown]
